FAERS Safety Report 4645178-X (Version None)
Quarter: 2005Q2

REPORT INFORMATION
  Report Type: 
  Country: None (occurrence: None)
  Receive Date: 20050331
  Receipt Date: 20041201
  Transmission Date: 20051028
  Serious: No
  Sender: FDA-Public Use
  Company Number: 04P-163-0281933

PATIENT
  Age: 51 Year
  Sex: Female

DRUGS (1)
  1. HUMIRA 40 MG / 0.8 ML PRE-FILLED SYRINGE ( HUMIRA ) ( ADAMUMAB ) [Suspect]
     Indication: RHEUMATOID ARTHRITIS
     Dosage: 40 MG, 1 IN 2 WK, SUBCUTANEOUS
     Route: 058
     Dates: start: 20040101, end: 20040101

REACTIONS (1)
  - RASH ERYTHEMATOUS [None]
